FAERS Safety Report 7500415-9 (Version None)
Quarter: 2011Q2

REPORT INFORMATION
  Report Type: 
  Country: None (occurrence: None)
  Receive Date: 20110524
  Receipt Date: 20110302
  Transmission Date: 20111010
  Serious: No
  Sender: FDA-Public Use
  Company Number: US-BRISTOL-MYERS SQUIBB COMPANY-15584030

PATIENT
  Age: 71 Year
  Sex: Male

DRUGS (1)
  1. ONGLYZA [Suspect]
     Dosage: 1DF:2.5 OR 5 MG

REACTIONS (2)
  - DIARRHOEA [None]
  - CHANGE OF BOWEL HABIT [None]
